FAERS Safety Report 7467134-9 (Version None)
Quarter: 2011Q2

REPORT INFORMATION
  Report Type: 
  Country: None (occurrence: None)
  Receive Date: 20110509
  Receipt Date: 20101026
  Transmission Date: 20111010
  Serious: No
  Sender: FDA-Public Use
  Company Number: US-ALEXION-A201001364

PATIENT
  Sex: Female

DRUGS (7)
  1. SOLIRIS [Suspect]
     Dosage: 900 MG, Q2W
     Route: 042
  2. LISINOPRIL [Concomitant]
     Dosage: UNK
     Route: 048
  3. CALCIUM [Concomitant]
     Dosage: UNK
     Route: 048
  4. FOLIC ACID [Concomitant]
     Dosage: UNK
     Route: 048
  5. SOLIRIS [Suspect]
     Indication: PAROXYSMAL NOCTURNAL HAEMOGLOBINURIA
     Dosage: 600 MG, UNK
     Route: 042
     Dates: start: 20070625, end: 20070101
  6. TYLENOL (CAPLET) [Concomitant]
     Dosage: UNK
     Route: 048
  7. AMLODIPINE BESYLATE [Concomitant]
     Dosage: UNK
     Route: 048

REACTIONS (4)
  - ERYTHEMA [None]
  - WHIPLASH INJURY [None]
  - ROAD TRAFFIC ACCIDENT [None]
  - CONTUSION [None]
